FAERS Safety Report 12318181 (Version 2)
Quarter: 2016Q2

REPORT INFORMATION
  Report Type: Spontaneous
  Country: CA (occurrence: CA)
  Receive Date: 20160429
  Receipt Date: 20160511
  Transmission Date: 20160815
  Serious: Yes (Death, Other)
  Sender: FDA-Public Use
  Company Number: CA-REGENERON PHARMACEUTICALS, INC.-2016-16426

PATIENT

DRUGS (1)
  1. EYLEA [Suspect]
     Active Substance: AFLIBERCEPT
     Indication: RENAL VEIN THROMBOSIS
     Dosage: UNSPECIFIED DOSE, ONCE
     Dates: start: 20160407, end: 20160407

REACTIONS (2)
  - Cerebrovascular accident [Fatal]
  - Off label use [Unknown]
